FAERS Safety Report 6071653-X (Version None)
Quarter: 2009Q1

REPORT INFORMATION
  Report Type: 
  Country: None (occurrence: None)
  Receive Date: 20090210
  Receipt Date: 20090204
  Transmission Date: 20090719
  Serious: No
  Sender: FDA-Public Use
  Company Number: US-JNJFOC-20090201502

PATIENT
  Sex: Female
  Weight: 81.65 kg

DRUGS (1)
  1. DURAGESIC-100 [Suspect]
     Indication: INJURY
     Route: 062

REACTIONS (1)
  - WRONG TECHNIQUE IN DRUG USAGE PROCESS [None]
